FAERS Safety Report 6057688-1 (Version None)
Quarter: 2009Q1

REPORT INFORMATION
  Report Type: 
  Country: None (occurrence: None)
  Receive Date: 20090129
  Receipt Date: 20080626
  Transmission Date: 20090719
  Serious: No
  Sender: FDA-Public Use
  Company Number: A0726087A

PATIENT
  Age: 42 Year
  Sex: Female

DRUGS (5)
  1. MEPRON [Suspect]
     Indication: BABESIOSIS
     Dosage: 1TSP TWICE PER DAY
     Route: 048
     Dates: start: 20080424, end: 20080424
  2. VITAMINS [Concomitant]
  3. PROBIOTIC [Concomitant]
  4. TRIAMTERENE [Concomitant]
  5. THYROID TAB [Concomitant]

REACTIONS (9)
  - DIZZINESS [None]
  - ERYTHEMA [None]
  - HYPERSENSITIVITY [None]
  - LIP SWELLING [None]
  - PARAESTHESIA [None]
  - PRURITUS [None]
  - PYREXIA [None]
  - SWOLLEN TONGUE [None]
  - THROAT TIGHTNESS [None]
